FAERS Safety Report 6840492-1 (Version None)
Quarter: 2010Q3

REPORT INFORMATION
  Report Type: 
  Country: None (occurrence: None)
  Receive Date: 20100714
  Receipt Date: 20100623
  Transmission Date: 20110219
  Serious: Yes (Hospitalization)
  Sender: FDA-Public Use
  Company Number: A0861521A

PATIENT
  Sex: Male

DRUGS (9)
  1. AVANDIA [Suspect]
     Dosage: 8MG PER DAY
     Dates: start: 20031014, end: 20051213
  2. AVANDAMET [Suspect]
     Indication: DIABETES MELLITUS
     Dates: start: 20050727, end: 20050920
  3. ZANTAC [Concomitant]
  4. VALIUM [Concomitant]
  5. LOPRESSOR [Concomitant]
  6. POTASSIUM CHLORIDE [Concomitant]
  7. BUMETANIDE [Concomitant]
  8. LOTREL [Concomitant]
  9. NITROGLYCERIN [Concomitant]

REACTIONS (3)
  - ANKLE FRACTURE [None]
  - CARDIAC FAILURE CONGESTIVE [None]
  - VENTRICULAR ARRHYTHMIA [None]
